FAERS Safety Report 16930750 (Version 3)
Quarter: 2020Q1

REPORT INFORMATION
  Report Type: Spontaneous
  Country: GB (occurrence: GB)
  Receive Date: 20191017
  Receipt Date: 20200113
  Transmission Date: 20200409
  Serious: Yes (Hospitalization, Other)
  Sender: FDA-Public Use
  Company Number: GB-MYLANLABS-2019M1097480

PATIENT
  Age: 75 Year
  Sex: Female

DRUGS (3)
  1. RISPERIDONE. [Suspect]
     Active Substance: RISPERIDONE
     Indication: SEDATION
     Dosage: SMALL DOSE
     Route: 065
  2. METHYLPREDNISOLONE                 /00049602/ [Concomitant]
     Active Substance: METHYLPREDNISOLONE
     Indication: ENCEPHALITIS AUTOIMMUNE
     Dosage: UNK
     Route: 042
  3. HALOPERIDOL. [Suspect]
     Active Substance: HALOPERIDOL
     Indication: SEDATION
     Dosage: SMALL DOSE

REACTIONS (8)
  - Bradykinesia [Unknown]
  - Drug intolerance [Unknown]
  - Hallucination, visual [Unknown]
  - Drug hypersensitivity [Unknown]
  - Fall [Unknown]
  - Cogwheel rigidity [Unknown]
  - Extrapyramidal disorder [Recovering/Resolving]
  - Urinary incontinence [Unknown]
